FAERS Safety Report 6435644-9 (Version None)
Quarter: 2009Q4

REPORT INFORMATION
  Report Type: 
  Country: None (occurrence: None)
  Receive Date: 20091110
  Receipt Date: 20080818
  Transmission Date: 20100525
  Serious: No
  Sender: FDA-Public Use
  Company Number: AECAN200800178

PATIENT
  Age: 56 Year
  Sex: Female

DRUGS (1)
  1. GAMUNEX [Suspect]
     Indication: IMMUNE SYSTEM DISORDER
     Dosage: 60 GM;QM;IV
     Route: 042
     Dates: start: 20080812, end: 20080812

REACTIONS (3)
  - DYSPNOEA [None]
  - INFUSION RELATED REACTION [None]
  - WHEEZING [None]
